FAERS Safety Report 20242883 (Version 2)
Quarter: 2022Q1

REPORT INFORMATION
  Report Type: Report from Study
  Country: JP (occurrence: JP)
  Receive Date: 20211228
  Receipt Date: 20220207
  Transmission Date: 20220423
  Serious: Yes (Hospitalization, Other)
  Sender: FDA-Public Use
  Company Number: JP-BRISTOL-MYERS SQUIBB COMPANY-BMS-2019-103614

PATIENT
  Age: 64 Year
  Sex: Female
  Weight: 48.1 kg

DRUGS (4)
  1. NIVOLUMAB [Suspect]
     Active Substance: NIVOLUMAB
     Indication: Malignant melanoma
     Dosage: 80 MILLIGRAM, Q3WK
     Route: 041
     Dates: start: 20180628, end: 20180809
  2. NIVOLUMAB [Suspect]
     Active Substance: NIVOLUMAB
     Dosage: 240 MILLIGRAM
     Route: 041
     Dates: start: 20181106, end: 20201006
  3. NIVOLUMAB [Suspect]
     Active Substance: NIVOLUMAB
     Dosage: 480 MILLIGRAM
     Route: 041
     Dates: start: 20201027
  4. IPILIMUMAB [Suspect]
     Active Substance: IPILIMUMAB
     Indication: Malignant melanoma
     Dosage: 145 MILLIGRAM, Q3WK
     Route: 041
     Dates: start: 20180628, end: 20180809

REACTIONS (3)
  - Drug-induced liver injury [Recovering/Resolving]
  - Interstitial lung disease [Recovering/Resolving]
  - Immune-mediated uveitis [Recovering/Resolving]

NARRATIVE: CASE EVENT DATE: 20180828
